APPROVED DRUG PRODUCT: CHLOROTHIAZIDE-RESERPINE
Active Ingredient: CHLOROTHIAZIDE; RESERPINE
Strength: 250MG;0.125MG
Dosage Form/Route: TABLET;ORAL
Application: A087744 | Product #001
Applicant: PHARMOBEDIENT CONSULTING LLC
Approved: May 6, 1982 | RLD: No | RS: No | Type: DISCN